FAERS Safety Report 23235193 (Version 2)
Quarter: 2023Q4

REPORT INFORMATION
  Report Type: Spontaneous
  Country: US (occurrence: US)
  Receive Date: 20231128
  Receipt Date: 20231222
  Transmission Date: 20240110
  Serious: No
  Sender: FDA-Public Use
  Company Number: US-PFIZER INC-202300381017

PATIENT
  Age: 26 Year
  Sex: Female
  Weight: 39.909 kg

DRUGS (1)
  1. EPINEPHRINE [Suspect]
     Active Substance: EPINEPHRINE
     Dosage: UNK

REACTIONS (1)
  - Drug ineffective [Unknown]
